FAERS Safety Report 12348647 (Version 1)
Quarter: 2016Q2

REPORT INFORMATION
  Report Type: Spontaneous
  Country: BR (occurrence: BR)
  Receive Date: 20160509
  Receipt Date: 20160509
  Transmission Date: 20160815
  Serious: Yes (Hospitalization)
  Sender: FDA-Public Use
  Company Number: BR-DSJP-DSU-2016-115316

PATIENT

DRUGS (6)
  1. VYTORIN [Concomitant]
     Active Substance: EZETIMIBE\SIMVASTATIN
     Indication: BLOOD CHOLESTEROL
     Dosage: 1 UNIT, QD
     Route: 048
  2. OLMETEC HCT 20/12.5 [Suspect]
     Active Substance: HYDROCHLOROTHIAZIDE\OLMESARTAN MEDOXOMIL
     Indication: PRODUCT USED FOR UNKNOWN INDICATION
     Dosage: 20/12.5 MG, UNK
     Route: 048
     Dates: start: 2014
  3. CIPIDE                             /00772401/ [Concomitant]
     Indication: BLOOD TRIGLYCERIDES ABNORMAL
     Dosage: 1 UNIT, QD
     Route: 048
     Dates: start: 2014
  4. TAPAZOL                            /00022901/ [Concomitant]
     Indication: HYPERTHYROIDISM
     Dosage: 1 UNIT, QD
     Route: 048
     Dates: start: 2014
  5. ESPUZEROM [Concomitant]
     Indication: LABYRINTHITIS
     Dosage: 1 UNIT, QD
     Route: 048
     Dates: start: 2006
  6. OMEPRAZOLE. [Concomitant]
     Active Substance: OMEPRAZOLE
     Indication: PROPHYLAXIS AGAINST GASTROINTESTINAL ULCER
     Dosage: 1 UNIT, QD
     Route: 048
     Dates: start: 2011

REACTIONS (2)
  - Blood pressure increased [Unknown]
  - Underdose [Unknown]
